FAERS Safety Report 25961402 (Version 1)
Quarter: 2025Q4

REPORT INFORMATION
  Report Type: Spontaneous
  Country: IQ (occurrence: IQ)
  Receive Date: 20251027
  Receipt Date: 20251027
  Transmission Date: 20260118
  Serious: Yes (Hospitalization)
  Sender: ROCHE
  Company Number: IQ-ROCHE-10000416440

PATIENT
  Sex: Male

DRUGS (1)
  1. GLOFITAMAB [Suspect]
     Active Substance: GLOFITAMAB
     Indication: Diffuse large B-cell lymphoma
     Route: 065

REACTIONS (7)
  - Cytokine release syndrome [Unknown]
  - Parainfluenzae virus infection [Unknown]
  - Respiratory tract infection [Unknown]
  - Swelling [Unknown]
  - Obstructive airways disorder [Unknown]
  - Multiple organ dysfunction syndrome [Unknown]
  - Soft tissue infection [Unknown]
